FAERS Safety Report 8807382 (Version 1)
Quarter: 2012Q4

REPORT INFORMATION
  Report Type: 
  Country: TR (occurrence: TR)
  Receive Date: 20120925
  Receipt Date: 20120925
  Transmission Date: 20130627
  Serious: Yes (Death, Hospitalization)
  Sender: FDA-Public Use
  Company Number: PHHO2004TR12988

PATIENT
  Age: 53 Year
  Sex: Female
  Weight: 67 kg

DRUGS (2)
  1. GLIVEC [Suspect]
     Indication: CHRONIC MYELOID LEUKAEMIA
     Dates: start: 20040706
  2. GLIVEC [Suspect]
     Dosage: 400 mg, QD
     Route: 048
     Dates: start: 20040716, end: 20040805

REACTIONS (3)
  - Death [Fatal]
  - Chronic myeloid leukaemia transformation [Recovering/Resolving]
  - Acute lymphocytic leukaemia [Recovering/Resolving]
